FAERS Safety Report 6314210-X (Version None)
Quarter: 2009Q3

REPORT INFORMATION
  Report Type: 
  Country: None (occurrence: None)
  Receive Date: 20090817
  Receipt Date: 20090807
  Transmission Date: 20100115
  Serious: Yes (Hospitalization)
  Sender: FDA-Public Use
  Company Number: 09-001292

PATIENT
  Age: 37 Year
  Sex: Female
  Weight: 104.3 kg

DRUGS (4)
  1. FEMCON FE [Suspect]
     Indication: MENSTRUATION IRREGULAR
     Dosage: 0.4MG/35MCG, QD, ORAL
     Route: 048
     Dates: start: 20090701, end: 20090805
  2. NEURONTIN [Concomitant]
  3. PROPRANOLOL [Concomitant]
  4. GLUCOSAMINE CHONDROITIN [Concomitant]

REACTIONS (10)
  - BURNING SENSATION [None]
  - CELLULITIS [None]
  - DEEP VEIN THROMBOSIS [None]
  - ERYTHEMA [None]
  - HYPERSENSITIVITY [None]
  - INFLAMMATION [None]
  - LYME DISEASE [None]
  - PAIN IN EXTREMITY [None]
  - SKIN DISORDER [None]
  - TENDERNESS [None]
